FAERS Safety Report 10971561 (Version 1)
Quarter: 2015Q1

REPORT INFORMATION
  Report Type: Spontaneous
  Country: FR (occurrence: FR)
  Receive Date: 20150331
  Receipt Date: 20150331
  Transmission Date: 20150721
  Serious: Yes (Life-Threatening)
  Sender: FDA-Public Use
  Company Number: FR-BAYER-2015-053913

PATIENT
  Age: 32 Year
  Sex: Female

DRUGS (2)
  1. TRACTOCILE [Suspect]
     Active Substance: ATOSIBAN
     Indication: UTERINE CONTRACTIONS DURING PREGNANCY
     Dosage: UNK, UNK
     Route: 042
     Dates: start: 20150225, end: 20150225
  2. ADALAT [Suspect]
     Active Substance: NIFEDIPINE
     Indication: TOCOLYSIS
     Dosage: UNK, UNK
     Route: 048
     Dates: start: 20150223, end: 20150224

REACTIONS (4)
  - Chest discomfort [Recovered/Resolved]
  - Pericardial effusion [Recovered/Resolved]
  - Pulmonary embolism [Recovered/Resolved]
  - Dyspnoea [Recovered/Resolved]

NARRATIVE: CASE EVENT DATE: 20150225
